FAERS Safety Report 25138985 (Version 2)
Quarter: 2025Q3

REPORT INFORMATION
  Report Type: Spontaneous
  Country: JP (occurrence: JP)
  Receive Date: 20250331
  Receipt Date: 20250822
  Transmission Date: 20251021
  Serious: No
  Sender: EISAI
  Company Number: JP-Eisai-202416806_HAL-STS_P_1

PATIENT
  Sex: Male

DRUGS (1)
  1. ERIBULIN [Suspect]
     Active Substance: ERIBULIN
     Indication: Dedifferentiated liposarcoma

REACTIONS (1)
  - Myelosuppression [Recovered/Resolved]
